FAERS Safety Report 6414053-2 (Version None)
Quarter: 2009Q4

REPORT INFORMATION
  Report Type: 
  Country: None (occurrence: None)
  Receive Date: 20091026
  Receipt Date: 20091019
  Transmission Date: 20100525
  Serious: Yes (Hospitalization)
  Sender: FDA-Public Use
  Company Number: FI-AVENTIS-200921866GDDC

PATIENT
  Age: 70 Year
  Sex: Female

DRUGS (9)
  1. APIDRA [Suspect]
     Dosage: DOSE: 2-6
     Route: 058
  2. LANTUS [Suspect]
     Route: 058
  3. ATENOL [Concomitant]
     Indication: HYPERTENSION
     Route: 048
  4. ANAFRANIL SR [Concomitant]
     Route: 048
  5. DIFORMIN [Concomitant]
     Route: 048
  6. CRESTOR [Concomitant]
     Route: 048
  7. PLAVIX [Concomitant]
     Route: 048
  8. SPIRESIS [Concomitant]
     Route: 048
  9. LYRICA [Concomitant]

REACTIONS (2)
  - PRODUCT QUALITY ISSUE [None]
  - WRONG DRUG ADMINISTERED [None]
